FAERS Safety Report 20134710 (Version 2)
Quarter: 2021Q4

REPORT INFORMATION
  Report Type: Spontaneous
  Country: AR (occurrence: AR)
  Receive Date: 20211201
  Receipt Date: 20211202
  Transmission Date: 20220303
  Serious: Yes (Other)
  Sender: FDA-Public Use
  Company Number: AR-MYLANLABS-2021M1088435

PATIENT
  Age: 23 Year
  Sex: Male

DRUGS (6)
  1. CLOZAPINE [Suspect]
     Active Substance: CLOZAPINE
     Indication: Psychotic disorder
     Dosage: 125 MILLIGRAM, QD
     Dates: start: 20211102, end: 20211125
  2. ALBUTEROL [Concomitant]
     Active Substance: ALBUTEROL
     Dosage: UNK, PUFF
  3. LAMOTRIGINE [Concomitant]
     Active Substance: LAMOTRIGINE
     Dosage: 100 MILLIGRAM, QD
  4. LORAZEPAM [Concomitant]
     Active Substance: LORAZEPAM
     Dosage: 3.7 MILLIGRAM, QD
  5. OLANZAPINE [Concomitant]
     Active Substance: OLANZAPINE
     Dosage: 2.5 MILLIGRAM, QD
  6. GABAPENTIN [Concomitant]
     Active Substance: GABAPENTIN
     Dosage: 1200 MILLIGRAM, QD

REACTIONS (4)
  - Neutropenia [Recovered/Resolved]
  - Monocyte count increased [Unknown]
  - Lymphocyte count increased [Unknown]
  - Eosinophil count increased [Unknown]

NARRATIVE: CASE EVENT DATE: 20211124
